FAERS Safety Report 8022596-3 (Version None)
Quarter: 2012Q1

REPORT INFORMATION
  Report Type: 
  Country: None (occurrence: None)
  Receive Date: 20120104
  Receipt Date: 20111221
  Transmission Date: 20120608
  Serious: Yes (Other)
  Sender: FDA-Public Use
  Company Number: US-VIIV HEALTHCARE LIMITED-B0655070A

PATIENT
  Age: 41 Year
  Sex: Male
  Weight: 71.4 kg

DRUGS (15)
  1. ETRAVIRINE [Concomitant]
     Indication: HIV INFECTION
     Dosage: 100MG TWICE PER DAY
     Route: 048
     Dates: start: 20080428
  2. ALPRAZOLAM [Concomitant]
     Dosage: 1MG AS REQUIRED
     Route: 048
     Dates: start: 20040403
  3. FLUOXETINE [Concomitant]
     Route: 048
     Dates: start: 20060926
  4. ZOLPIDEM [Concomitant]
     Route: 048
     Dates: start: 20070720
  5. ISENTRESS [Suspect]
     Dosage: 400MG TWICE PER DAY
     Route: 048
     Dates: start: 20091202
  6. DAPSONE [Concomitant]
     Dosage: 100MG PER DAY
     Route: 048
     Dates: start: 20040308
  7. PREZISTA [Suspect]
     Dosage: 600MG TWICE PER DAY
     Route: 048
     Dates: start: 20110601
  8. ACYCLOVIR [Concomitant]
     Route: 048
     Dates: start: 20080605
  9. TRUVADA [Suspect]
     Indication: HIV INFECTION
     Route: 048
     Dates: start: 20081205
  10. DICLOXACILLIN [Concomitant]
     Route: 048
     Dates: start: 20071126
  11. MARAVIROC [Suspect]
     Indication: HIV INFECTION
     Dosage: 150MG TWICE PER DAY
     Dates: start: 20060213, end: 20060428
  12. HYDROCODONE BITARTRATE AND ACETAMINOPHEN [Concomitant]
     Dosage: 650MG AS REQUIRED
     Route: 048
     Dates: start: 20110714
  13. NORVIR [Suspect]
     Dosage: 100MG TWICE PER DAY
     Route: 048
     Dates: start: 20110601
  14. FLUCONAZOLE [Concomitant]
     Dosage: 200MG PER DAY
     Route: 048
     Dates: start: 20110601
  15. ZOLPIDEM [Concomitant]
     Dosage: 10MG AT NIGHT
     Route: 048
     Dates: start: 20110531

REACTIONS (3)
  - CARCINOMA IN SITU [None]
  - ANOGENITAL WARTS [None]
  - ANOGENITAL DYSPLASIA [None]
